FAERS Safety Report 9454552 (Version 2)
Quarter: 2013Q4

REPORT INFORMATION
  Report Type: Spontaneous
  Country: US (occurrence: None)
  Receive Date: 20130808
  Receipt Date: 20131001
  Transmission Date: 20140711
  Serious: Yes (Other)
  Sender: FDA-Public Use
  Company Number: ACO_37760_2013

PATIENT
  Age: 56 Year
  Sex: Female
  Weight: 83 kg

DRUGS (8)
  1. AMPYRA [Suspect]
     Indication: MULTIPLE SCLEROSIS
     Route: 048
     Dates: start: 20130612, end: 20130724
  2. ATENOLOL (ATENOLOL) [Concomitant]
  3. COPAXONE GLATIRAMER ACETATE) [Concomitant]
  4. GLYBURIDE (GLBENCLAMIDE) [Concomitant]
  5. LANTUS (INSULIN GLARGINE) [Concomitant]
  6. METFORMIN (METFORMIN HYDROCHLORIDE) [Concomitant]
  7. PIOGLITAZONE (PIOGLITAZONE HYDROCHLORIDE)(TABLETS) [Concomitant]
  8. SIMVASTATIN (SIMVASTATIN) [Concomitant]

REACTIONS (2)
  - Convulsion [None]
  - Cystitis [None]
